FAERS Safety Report 9872923 (Version 2)
Quarter: 2014Q2

REPORT INFORMATION
  Report Type: Spontaneous
  Country: US (occurrence: US)
  Receive Date: 20140206
  Receipt Date: 20140416
  Transmission Date: 20141212
  Serious: Yes (Hospitalization, Other)
  Sender: FDA-Public Use
  Company Number: US-AMGEN-USASP2014007628

PATIENT
  Age: 28 Year
  Sex: Male
  Weight: 88.89 kg

DRUGS (1)
  1. ENBREL [Suspect]
     Indication: ANKYLOSING SPONDYLITIS
     Dosage: 50 MG, QWK
     Route: 058
     Dates: start: 20050801

REACTIONS (5)
  - Schizophrenia [Not Recovered/Not Resolved]
  - Pain [Not Recovered/Not Resolved]
  - Spinal pain [Not Recovered/Not Resolved]
  - Arthralgia [Not Recovered/Not Resolved]
  - Back pain [Unknown]
